FAERS Safety Report 10617365 (Version 4)
Quarter: 2022Q3

REPORT INFORMATION
  Report Type: Spontaneous
  Country: US (occurrence: US)
  Receive Date: 20141201
  Receipt Date: 20220821
  Transmission Date: 20221027
  Serious: Yes (Other)
  Sender: FDA-Public Use
  Company Number: US-GLAXOSMITHKLINE-US2014GSK026533

PATIENT
  Sex: Male
  Weight: 96.2 kg

DRUGS (5)
  1. VOTRIENT [Suspect]
     Active Substance: PAZOPANIB HYDROCHLORIDE
     Indication: Renal cancer
     Dosage: 600 MG, QD
     Route: 048
     Dates: start: 20141028
  2. FISH OIL [Concomitant]
     Active Substance: FISH OIL
  3. OMEGA 3 [Concomitant]
     Active Substance: CAPSAICIN
  4. IRON [Concomitant]
     Active Substance: IRON
  5. VITAMINS [Concomitant]
     Active Substance: VITAMINS

REACTIONS (1)
  - Hip fracture [Unknown]
